FAERS Safety Report 19969680 (Version 1)
Quarter: 2021Q4

REPORT INFORMATION
  Report Type: Spontaneous
  Country: US (occurrence: US)
  Receive Date: 20211019
  Receipt Date: 20211019
  Transmission Date: 20220303
  Serious: Yes (Other)
  Sender: FDA-Public Use
  Company Number: US-PFIZER INC-202101253187

PATIENT
  Age: 63 Year
  Sex: Female

DRUGS (8)
  1. XELJANZ XR [Suspect]
     Active Substance: TOFACITINIB CITRATE
     Indication: Rheumatoid arthritis
     Dosage: 11 MG
     Dates: start: 20210924, end: 20211007
  2. XELJANZ XR [Suspect]
     Active Substance: TOFACITINIB CITRATE
     Indication: Ankylosing spondylitis
  3. XELJANZ XR [Suspect]
     Active Substance: TOFACITINIB CITRATE
     Indication: Psoriatic arthropathy
  4. LEVOTHYROXINE SODIUM [Concomitant]
     Active Substance: LEVOTHYROXINE SODIUM
     Indication: Hypothyroidism
     Dosage: 0.5 UNK
  5. KETOROLAC TROMETHAMINE [Concomitant]
     Active Substance: KETOROLAC TROMETHAMINE
     Indication: Pain
     Dosage: UNK, EVERY 6 HOURS AS NEEDED
  6. LORAZEPAM [Concomitant]
     Active Substance: LORAZEPAM
     Indication: Sleep disorder
     Dosage: 0.05 UNK
  7. LORAZEPAM [Concomitant]
     Active Substance: LORAZEPAM
     Indication: Anxiety
  8. LISINOPRIL [Concomitant]
     Active Substance: LISINOPRIL
     Dosage: UNK

REACTIONS (3)
  - Herpes zoster oticus [Unknown]
  - Disease recurrence [Unknown]
  - Tooth disorder [Unknown]

NARRATIVE: CASE EVENT DATE: 20211006
